FAERS Safety Report 7383883-5 (Version None)
Quarter: 2011Q1

REPORT INFORMATION
  Report Type: 
  Country: None (occurrence: None)
  Receive Date: 20110330
  Receipt Date: 20110317
  Transmission Date: 20110831
  Serious: Yes (Other)
  Sender: FDA-Public Use
  Company Number: US-TYCO HEALTHCARE/MALLINCKRODT-T201100633

PATIENT
  Sex: Female

DRUGS (3)
  1. OPTIRAY 350 [Suspect]
     Indication: COMPUTERISED TOMOGRAM
     Dosage: 100 ML, SINGLE
     Route: 042
     Dates: start: 20110316, end: 20110316
  2. IBUPROFEN [Concomitant]
     Dosage: 800 MG, TID PRN
  3. SULFAMETHOXAZOLE DS [Concomitant]
     Dosage: 800-1600 MG BID

REACTIONS (4)
  - PRURITUS [None]
  - COUGH [None]
  - WHEEZING [None]
  - THROAT IRRITATION [None]
